FAERS Safety Report 7580683-8 (Version None)
Quarter: 2011Q2

REPORT INFORMATION
  Report Type: 
  Country: None (occurrence: None)
  Receive Date: 20110629
  Receipt Date: 20110617
  Transmission Date: 20111010
  Serious: Yes (Other)
  Sender: FDA-Public Use
  Company Number: DE-ALEXION-A201100833

PATIENT
  Sex: Male

DRUGS (3)
  1. HEPARIN [Concomitant]
     Route: 042
  2. SOLIRIS [Suspect]
     Indication: HAEMOLYTIC URAEMIC SYNDROME
     Dosage: 900 MG, UNK
     Route: 042
     Dates: start: 20110603
  3. SOLIRIS [Suspect]
     Dosage: 900 MG, UNK
     Route: 042
     Dates: start: 20110606

REACTIONS (7)
  - DISTURBANCE IN ATTENTION [None]
  - ABDOMINAL PAIN [None]
  - MYOCLONUS [None]
  - PLATELET COUNT DECREASED [None]
  - DIARRHOEA HAEMORRHAGIC [None]
  - SOMNOLENCE [None]
  - INFECTION [None]
